FAERS Safety Report 15115807 (Version 2)
Quarter: 2019Q1

REPORT INFORMATION
  Report Type: Spontaneous
  Country: US (occurrence: US)
  Receive Date: 20180706
  Receipt Date: 20190108
  Transmission Date: 20190417
  Serious: No
  Sender: FDA-Public Use
  Company Number: US-UNIQUE PHARMACEUTICAL LABORATORIES-2018RIS00234

PATIENT
  Age: 72 Year
  Sex: Female

DRUGS (4)
  1. GLIPIZIDE. [Suspect]
     Active Substance: GLIPIZIDE
     Indication: DIABETES MELLITUS
     Dosage: 5 MG, 2X/DAY
     Route: 048
     Dates: start: 201709
  2. DILAUDID [Suspect]
     Active Substance: HYDROMORPHONE HYDROCHLORIDE
  3. UNSPECIFIED HIGH BLOOD PRESSURE MEDICATION [Concomitant]
     Active Substance: UNSPECIFIED INGREDIENT
  4. BYDUREON [Concomitant]
     Active Substance: EXENATIDE

REACTIONS (6)
  - Product commingling [Recovered/Resolved]
  - Medication error [Recovered/Resolved]
  - Product physical issue [Recovered/Resolved]
  - Inappropriate schedule of product administration [Unknown]
  - Glycosylated haemoglobin increased [Recovering/Resolving]
  - Blood glucose increased [Unknown]

NARRATIVE: CASE EVENT DATE: 201709
